FAERS Safety Report 22106112 (Version 1)
Quarter: 2023Q1

REPORT INFORMATION
  Report Type: Spontaneous
  Country: US (occurrence: US)
  Receive Date: 20230317
  Receipt Date: 20230317
  Transmission Date: 20230417
  Serious: Yes (Other)
  Sender: FDA-Public Use
  Company Number: US-SANOFI-01527738

PATIENT
  Age: 29 Year
  Sex: Female

DRUGS (2)
  1. DUPIXENT [Suspect]
     Active Substance: DUPILUMAB
     Indication: Asthma
     Dosage: 300 MG, 1X
     Route: 065
     Dates: start: 202302
  2. DUPIXENT [Suspect]
     Active Substance: DUPILUMAB
     Indication: Eosinophilic oesophagitis

REACTIONS (18)
  - Anaphylactic shock [Unknown]
  - Deafness [Not Recovered/Not Resolved]
  - Injection site warmth [Unknown]
  - Throat tightness [Unknown]
  - Oesophageal pain [Unknown]
  - Injection site rash [Unknown]
  - Dysphonia [Unknown]
  - Fatigue [Unknown]
  - Pain [Unknown]
  - Ear infection [Unknown]
  - Skin swelling [Unknown]
  - Secretion discharge [Not Recovered/Not Resolved]
  - Dizziness [Unknown]
  - Injection site erythema [Unknown]
  - Condition aggravated [Unknown]
  - Injection site swelling [Unknown]
  - Rash [Unknown]
  - Incorrect dose administered [Unknown]

NARRATIVE: CASE EVENT DATE: 20230101
